FAERS Safety Report 6253521-3 (Version None)
Quarter: 2009Q3

REPORT INFORMATION
  Report Type: 
  Country: None (occurrence: None)
  Receive Date: 20090701
  Receipt Date: 20090625
  Transmission Date: 20100115
  Serious: Yes (Other)
  Sender: FDA-Public Use
  Company Number: US-MYLANLABS-2009S1006414

PATIENT
  Age: 44 Year
  Sex: Female

DRUGS (3)
  1. CLOZAPINE [Suspect]
     Indication: SCHIZOPHRENIA
     Route: 048
     Dates: end: 20090501
  2. ABILIFY [Concomitant]
  3. CLOMIPRAMINE HCL [Concomitant]

REACTIONS (2)
  - GRANULOCYTOPENIA [None]
  - LYMPHOCYTE COUNT INCREASED [None]
